FAERS Safety Report 10500312 (Version 3)
Quarter: 2014Q4

REPORT INFORMATION
  Report Type: Report from Study
  Country: KR (occurrence: KR)
  Receive Date: 20141006
  Receipt Date: 20141021
  Transmission Date: 20150528
  Serious: Yes (Hospitalization, Other)
  Sender: FDA-Public Use
  Company Number: KR-GILEAD-2014-0116801

PATIENT
  Age: 54 Year
  Sex: Male
  Weight: 80.9 kg

DRUGS (5)
  1. URSA [Concomitant]
     Dosage: UNK
     Dates: start: 20140707
  2. GODEX [Concomitant]
     Dosage: UNK
     Dates: start: 20140707
  3. MACPERAN [Concomitant]
     Dosage: UNK
     Dates: start: 20140829, end: 20140829
  4. TENOFOVIR DISOPROXIL FUMARATE [Suspect]
     Active Substance: TENOFOVIR DISOPROXIL FUMARATE
     Indication: PRODUCT USED FOR UNKNOWN INDICATION
     Dosage: UNK
     Route: 048
     Dates: start: 20140709
  5. PHENIRAMIN [Concomitant]
     Indication: HYPERSENSITIVITY
     Dosage: UNK
     Dates: start: 20140826, end: 20140829

REACTIONS (1)
  - Therapeutic embolisation [Recovered/Resolved]

NARRATIVE: CASE EVENT DATE: 20140825
